FAERS Safety Report 7243291-4 (Version None)
Quarter: 2011Q1

REPORT INFORMATION
  Report Type: 
  Country: None (occurrence: None)
  Receive Date: 20110125
  Receipt Date: 20110113
  Transmission Date: 20110831
  Serious: Yes (Other)
  Sender: FDA-Public Use
  Company Number: DE-ROCHE-755008

PATIENT
  Age: 35 Year
  Sex: Female

DRUGS (1)
  1. TAMIFLU [Suspect]
     Route: 065
     Dates: start: 20110106, end: 20110110

REACTIONS (4)
  - ANXIETY [None]
  - NIGHTMARE [None]
  - DEPRESSION [None]
  - AGITATION [None]
